FAERS Safety Report 14180952 (Version 1)
Quarter: 2017Q4

REPORT INFORMATION
  Report Type: Spontaneous
  Country: US (occurrence: US)
  Receive Date: 20171110
  Receipt Date: 20171110
  Transmission Date: 20180321
  Serious: No
  Sender: FDA-Public Use
  Company Number: None

PATIENT
  Sex: Female
  Weight: 99 kg

DRUGS (8)
  1. VICTOZA [Concomitant]
     Active Substance: LIRAGLUTIDE
  2. ASPIRIN. [Concomitant]
     Active Substance: ASPIRIN
  3. DIOVAN HCT [Concomitant]
     Active Substance: HYDROCHLOROTHIAZIDE\VALSARTAN
  4. VALIUM [Concomitant]
     Active Substance: DIAZEPAM
  5. METFORMIN HCL [Suspect]
     Active Substance: METFORMIN HYDROCHLORIDE
     Indication: DIABETES MELLITUS
     Dosage: ?          QUANTITY:1 TABLET(S);?
     Route: 048
     Dates: start: 20171004, end: 20171109
  6. ZETIA [Concomitant]
     Active Substance: EZETIMIBE
  7. VITAMIN D [Concomitant]
     Active Substance: CHOLECALCIFEROL
  8. ATORVASTATIN [Concomitant]
     Active Substance: ATORVASTATIN

REACTIONS (2)
  - Product substitution issue [None]
  - Product odour abnormal [None]

NARRATIVE: CASE EVENT DATE: 20171109
